FAERS Safety Report 7065996-0 (Version None)
Quarter: 2010Q4

REPORT INFORMATION
  Report Type: 
  Country: None (occurrence: None)
  Receive Date: 20101027
  Receipt Date: 20100806
  Transmission Date: 20110411
  Serious: Yes (Other)
  Sender: FDA-Public Use
  Company Number: HQWYE125804FEB05

PATIENT
  Sex: Female
  Weight: 54.48 kg

DRUGS (5)
  1. PREMPRO [Suspect]
     Indication: MENOPAUSAL SYMPTOMS
  2. FOSAMAX [Concomitant]
     Indication: OSTEOPOROSIS
     Dosage: UNSPECIFIED
     Route: 048
     Dates: start: 20041001
  3. FLONASE [Concomitant]
     Indication: ASTHMA
     Dosage: UNSPECIFIED
     Route: 055
     Dates: start: 19980101
  4. SYNTHROID [Concomitant]
     Indication: HYPOTHYROIDISM
     Dosage: UNSPECIFIED
     Route: 048
     Dates: start: 19850101
  5. ATROVENT [Concomitant]
     Indication: ASTHMA
     Dosage: UNSPECIFIED
     Route: 055
     Dates: start: 19980101, end: 20050101

REACTIONS (1)
  - BREAST CANCER [None]
